FAERS Safety Report 9992493 (Version 1)
Quarter: 2014Q1

REPORT INFORMATION
  Report Type: Spontaneous
  Country: IT (occurrence: IT)
  Receive Date: 20140310
  Receipt Date: 20140310
  Transmission Date: 20141002
  Serious: Yes (Hospitalization)
  Sender: FDA-Public Use
  Company Number: PHHY2014IT027461

PATIENT
  Age: 51 Year
  Sex: Female

DRUGS (6)
  1. TOLEP [Suspect]
     Indication: DRUG ABUSE
     Dosage: 600 MG UNK
     Dates: start: 201203
  2. TOLEP [Suspect]
     Dosage: 3 DF, (600 MG)
     Route: 048
     Dates: start: 20140226, end: 20140226
  3. ANAFRANIL [Suspect]
     Indication: DRUG ABUSE
     Dosage: 75 , UNK
     Dates: start: 201203
  4. ANAFRANIL [Suspect]
     Dosage: 25 , UNK
     Dates: start: 201301
  5. ANAFRANIL [Suspect]
     Dosage: 4 DF
     Route: 048
     Dates: start: 20140226, end: 20140226
  6. SEROQUEL [Suspect]
     Indication: DRUG ABUSE
     Dosage: 8 DF
     Route: 048
     Dates: start: 20140226, end: 20140226

REACTIONS (2)
  - Drug abuse [Recovering/Resolving]
  - Somnolence [Recovering/Resolving]
